FAERS Safety Report 20320306 (Version 1)
Quarter: 2022Q1

REPORT INFORMATION
  Report Type: Spontaneous
  Country: BR (occurrence: BR)
  Receive Date: 20220111
  Receipt Date: 20220111
  Transmission Date: 20220423
  Serious: Yes (Other)
  Sender: FDA-Public Use
  Company Number: BR-009507513-2201BRA001072

PATIENT
  Sex: Female

DRUGS (1)
  1. JANUVIA [Suspect]
     Active Substance: SITAGLIPTIN PHOSPHATE
     Dosage: UNKNOWN

REACTIONS (4)
  - Diabetes mellitus [Unknown]
  - Cardiovascular disorder [Unknown]
  - Blood cholesterol [Unknown]
  - Thyroid disorder [Unknown]
